FAERS Safety Report 4763782-5 (Version None)
Quarter: 2005Q3

REPORT INFORMATION
  Report Type: 
  Country: None (occurrence: None)
  Receive Date: 20050908
  Receipt Date: 20050830
  Transmission Date: 20060218
  Serious: Yes (Death)
  Sender: FDA-Public Use
  Company Number: US-BRISTOL-MYERS SQUIBB COMPANY-13094396

PATIENT
  Age: 36 Year
  Sex: Male

DRUGS (2)
  1. REYATAZ [Suspect]
  2. MEGACE [Suspect]

REACTIONS (1)
  - DEATH [None]
